FAERS Safety Report 9532006 (Version 1)
Quarter: 2013Q2

REPORT INFORMATION
  Report Type: Spontaneous
  Country: US (occurrence: None)
  Receive Date: 20130503
  Receipt Date: 20130503
  Transmission Date: 20140414
  Serious: Yes (Other)
  Sender: FDA-Public Use
  Company Number: 1000041700

PATIENT
  Age: 60 Year
  Sex: Female

DRUGS (5)
  1. DALIRESP [Suspect]
     Indication: CHRONIC OBSTRUCTIVE PULMONARY DISEASE
     Route: 048
     Dates: start: 20121228, end: 20130101
  2. PREDNISON (PREDNISONE (PREDNISONE) [Concomitant]
  3. LEVAQUIN (LEVOFLOXACIN) (LEVOFLOXACIN) [Concomitant]
  4. SYMBICORT (BUDENSONIDE W/FORMOTEROL FUMARATE) (BUDENSONIDE W/FORMOTEROL FUMARATE) [Concomitant]
  5. ALBUTEROL (ALBUTEROL) (ALBUTEROL) [Concomitant]

REACTIONS (7)
  - Swelling face [None]
  - Lip swelling [None]
  - Erythema [None]
  - Diarrhoea [None]
  - Vomiting [None]
  - Dizziness [None]
  - Amnesia [None]
